FAERS Safety Report 5139429-5 (Version None)
Quarter: 2006Q4

REPORT INFORMATION
  Report Type: 
  Country: None (occurrence: None)
  Receive Date: 20061030
  Receipt Date: 20060306
  Transmission Date: 20070319
  Serious: No
  Sender: FDA-Public Use
  Company Number: US-GLAXOSMITHKLINE-A0596304A

PATIENT
  Age: 78 Year
  Sex: Male

DRUGS (5)
  1. SEREVENT [Suspect]
     Indication: DRUG USE FOR UNKNOWN INDICATION
     Dosage: 2PUFF TWICE PER DAY
     Route: 055
     Dates: start: 20060303
  2. ROBITUSSIN AC [Concomitant]
  3. KEFLEX [Concomitant]
  4. ZITHROMAX [Concomitant]
  5. DARVOCET [Concomitant]

REACTIONS (1)
  - DRUG INEFFECTIVE [None]
